FAERS Safety Report 14013894 (Version 1)
Quarter: 2017Q3

REPORT INFORMATION
  Report Type: Spontaneous
  Country: IT (occurrence: IT)
  Receive Date: 20170926
  Receipt Date: 20170926
  Transmission Date: 20171128
  Serious: Yes (Other)
  Sender: FDA-Public Use
  Company Number: IT-ABBVIE-17P-083-2113005-00

PATIENT
  Age: 22 Year
  Sex: Female

DRUGS (1)
  1. MACLADIN [Suspect]
     Active Substance: CLARITHROMYCIN
     Indication: BRONCHITIS
     Dosage: 1 DF, QD
     Route: 048

REACTIONS (5)
  - Drug hypersensitivity [Recovering/Resolving]
  - Tachypnoea [Recovering/Resolving]
  - Psychomotor hyperactivity [Recovering/Resolving]
  - Vomiting [Recovering/Resolving]
  - Abdominal pain upper [Recovering/Resolving]

NARRATIVE: CASE EVENT DATE: 20170918
